FAERS Safety Report 25664602 (Version 1)
Quarter: 2025Q3

REPORT INFORMATION
  Report Type: Spontaneous
  Country: US (occurrence: None)
  Receive Date: 20250808
  Receipt Date: 20250808
  Transmission Date: 20251020
  Serious: No
  Sender: FDA-CTU
  Company Number: None

PATIENT
  Sex: Male

DRUGS (2)
  1. TALTZ [Suspect]
     Active Substance: IXEKIZUMAB
     Indication: Psoriasis
     Dosage: FREQUENCY : MONTHLY;?
     Route: 058
     Dates: start: 20250411
  2. ERYTHROMYCIN OIN 5MG/GM [Concomitant]

REACTIONS (3)
  - Intentional dose omission [None]
  - Tonsillectomy [None]
  - Cholecystectomy [None]
